FAERS Safety Report 16190717 (Version 2)
Quarter: 2019Q2

REPORT INFORMATION
  Report Type: Report from Study
  Country: US (occurrence: US)
  Receive Date: 20190412
  Receipt Date: 20190524
  Transmission Date: 20190711
  Serious: Yes (Hospitalization, Other)
  Sender: FDA-Public Use
  Company Number: US-ALEXION PHARMACEUTICALS INC.-A201905215

PATIENT
  Age: 22 Year
  Sex: Male
  Weight: 72 kg

DRUGS (3)
  1. SOLIRIS [Suspect]
     Active Substance: ECULIZUMAB
     Dosage: UNK
     Route: 065
  2. SOLIRIS [Suspect]
     Active Substance: ECULIZUMAB
     Indication: PAROXYSMAL NOCTURNAL HAEMOGLOBINURIA
     Dosage: 900 MG, Q2W
     Route: 065
     Dates: start: 20120216
  3. SOLIRIS [Suspect]
     Active Substance: ECULIZUMAB
     Dosage: UNK
     Route: 065

REACTIONS (19)
  - Mean cell haemoglobin concentration decreased [Unknown]
  - Haematocrit decreased [Unknown]
  - Haptoglobin decreased [Unknown]
  - Haemoglobinuria [Unknown]
  - Mean cell volume increased [Unknown]
  - Neutrophil count decreased [Unknown]
  - Fatigue [Unknown]
  - Haemoglobin decreased [Not Recovered/Not Resolved]
  - Red cell distribution width increased [Unknown]
  - Aspartate aminotransferase increased [Unknown]
  - Blood glucose increased [Not Recovered/Not Resolved]
  - Blood potassium increased [Unknown]
  - Blood alkaline phosphatase decreased [Unknown]
  - Mean cell haemoglobin increased [Unknown]
  - Erectile dysfunction [Unknown]
  - Pancytopenia [Unknown]
  - Quality of life decreased [Unknown]
  - Blood lactate dehydrogenase increased [Unknown]
  - Reticulocyte count increased [Unknown]

NARRATIVE: CASE EVENT DATE: 20131204
